FAERS Safety Report 8359702-7 (Version None)
Quarter: 2012Q2

REPORT INFORMATION
  Report Type: 
  Country: None (occurrence: None)
  Receive Date: 20120515
  Receipt Date: 20120508
  Transmission Date: 20120825
  Serious: Yes (Hospitalization)
  Sender: FDA-Public Use
  Company Number: CH-UCBSA-046449

PATIENT
  Age: 28 Year
  Sex: Female

DRUGS (3)
  1. CIMZIA [Suspect]
     Dates: start: 20090201, end: 20090301
  2. CIMZIA [Suspect]
     Indication: CROHN'S DISEASE
     Route: 058
     Dates: start: 20110301, end: 20110613
  3. MAGNESIUM [Concomitant]

REACTIONS (2)
  - PSORIASIS [None]
  - DERMATITIS [None]
